FAERS Safety Report 17411474 (Version 1)
Quarter: 2020Q1

REPORT INFORMATION
  Report Type: Spontaneous
  Country: FR (occurrence: FR)
  Receive Date: 20200212
  Receipt Date: 20200212
  Transmission Date: 20200409
  Serious: Yes (Hospitalization)
  Sender: FDA-Public Use
  Company Number: FR-SUN PHARMACEUTICAL INDUSTRIES LTD-2020RR-236230

PATIENT
  Age: 17 Year
  Sex: Female

DRUGS (3)
  1. SERESTA 10 MG, COMPRIME [Suspect]
     Active Substance: OXAZEPAM
     Indication: INTENTIONAL OVERDOSE
     Dosage: IN TOTAL
     Route: 048
     Dates: start: 20191225, end: 20191225
  2. PARACETAMOL [Suspect]
     Active Substance: ACETAMINOPHEN
     Indication: INTENTIONAL OVERDOSE
     Dosage: IN TOTAL
     Route: 048
     Dates: start: 20191225, end: 20191225
  3. MUCOMYST [Concomitant]
     Active Substance: ACETYLCYSTEINE
     Indication: INTENTIONAL OVERDOSE
     Dosage: IN TOTAL
     Route: 048
     Dates: start: 20191225

REACTIONS (2)
  - Somnolence [Recovered/Resolved]
  - Poisoning deliberate [Recovered/Resolved]

NARRATIVE: CASE EVENT DATE: 20191225
